FAERS Safety Report 8173997-4 (Version None)
Quarter: 2012Q1

REPORT INFORMATION
  Report Type: 
  Country: None (occurrence: None)
  Receive Date: 20120229
  Receipt Date: 20120227
  Transmission Date: 20120608
  Serious: Yes (Hospitalization, Other)
  Sender: FDA-Public Use
  Company Number: US-BAYER-2011-027832

PATIENT
  Age: 62 Year
  Sex: Female
  Weight: 62.27 kg

DRUGS (14)
  1. AVASTIN [Concomitant]
     Dosage: UNK
     Dates: start: 20110228, end: 20110228
  2. LISINOPRIL [Concomitant]
     Dosage: 40 MG QD
  3. FISH OIL [Concomitant]
     Dosage: 850 MG QD
  4. CALCIUM +VIT D [Concomitant]
     Dosage: 600 MG -2 (...)
  5. CARBOPLATIN [Concomitant]
     Dosage: UNK
     Dates: start: 20110228, end: 20110228
  6. SINGULAIR [Concomitant]
     Dosage: 10 MG QD
  7. TARCEVA [Concomitant]
     Indication: HEPATIC NEOPLASM MALIGNANT
     Dosage: 100 MG, QD
     Route: 048
     Dates: start: 20110301, end: 20110329
  8. NEXAVAR [Suspect]
     Dosage: 400 MG, BID
     Route: 048
     Dates: start: 20110421, end: 20110501
  9. HYDROCHLOROTHIAZIDE [Concomitant]
     Dosage: 12.5 MG QD
  10. TAXOL [Concomitant]
     Dosage: UNK
     Dates: start: 20110228, end: 20110228
  11. LORAZEPAM [Concomitant]
     Dosage: 0.5 MG QD
  12. PREDNISOLONE [Concomitant]
     Dosage: 10 MG QD
     Dates: start: 20110101
  13. COENZYME Q10 [Concomitant]
     Dosage: 120 MG QD
  14. NEXAVAR [Suspect]
     Indication: HEPATIC NEOPLASM MALIGNANT
     Dosage: 400 MG, BID
     Route: 048
     Dates: start: 20110325, end: 20110329

REACTIONS (6)
  - MUCOSAL INFLAMMATION [None]
  - MENTAL STATUS CHANGES [None]
  - CONFUSIONAL STATE [None]
  - WEIGHT DECREASED [None]
  - ABDOMINAL PAIN [None]
  - PYREXIA [None]
